FAERS Safety Report 12183934 (Version 1)
Quarter: 2016Q1

REPORT INFORMATION
  Report Type: Report from Study
  Country: DE (occurrence: DE)
  Receive Date: 20160316
  Receipt Date: 20160316
  Transmission Date: 20160526
  Serious: Yes (Other)
  Sender: FDA-Public Use
  Company Number: DE-ASTELLAS-2016US009705

PATIENT
  Age: 78 Year
  Sex: Female

DRUGS (4)
  1. ERLOTINIB [Suspect]
     Active Substance: ERLOTINIB
     Indication: NON-SMALL CELL LUNG CANCER
     Route: 048
     Dates: start: 20130122, end: 20130219
  2. ERLOTINIB [Suspect]
     Active Substance: ERLOTINIB
     Route: 048
     Dates: start: 20130223, end: 20130304
  3. ERLOTINIB [Suspect]
     Active Substance: ERLOTINIB
     Route: 048
     Dates: start: 20130325, end: 20130404
  4. ERLOTINIB [Suspect]
     Active Substance: ERLOTINIB
     Route: 048
     Dates: start: 20130405

REACTIONS (8)
  - Decreased appetite [Recovered/Resolved]
  - Diarrhoea [Recovering/Resolving]
  - Neoplasm malignant [Unknown]
  - Alopecia [Not Recovered/Not Resolved]
  - Dermatitis acneiform [Recovered/Resolved]
  - Eye inflammation [Recovered/Resolved]
  - Fatigue [Recovering/Resolving]
  - Rhinitis [Recovered/Resolved]

NARRATIVE: CASE EVENT DATE: 20130127
